FAERS Safety Report 5130052-5 (Version None)
Quarter: 2006Q4

REPORT INFORMATION
  Report Type: 
  Country: None (occurrence: None)
  Receive Date: 20061013
  Receipt Date: 20061002
  Transmission Date: 20070319
  Serious: Yes (Hospitalization, Other)
  Sender: FDA-Public Use
  Company Number: 2006112537

PATIENT
  Age: 16 Year
  Sex: Male

DRUGS (6)
  1. AZITHROMYCIN [Suspect]
     Indication: STREPTOCOCCAL INFECTION
     Dosage: 500 MG, ORAL
     Route: 048
     Dates: start: 20060902, end: 20060904
  2. AZEPTIN (AZELASTINE) [Suspect]
     Indication: STREPTOCOCCAL INFECTION
     Dosage: 2 MG, ORAL
     Route: 048
     Dates: start: 20060902, end: 20060907
  3. MUCOSTA (REBAMIPIDE) [Suspect]
     Indication: PROPHYLAXIS
     Dosage: 300 MG, ORAL
     Route: 048
     Dates: start: 20060902, end: 20060907
  4. MEIACT (CEFDITOREN PIVOXIL) [Concomitant]
  5. CALONAL (PARACETAMOL) [Concomitant]
  6. LOXONIN (LOXOPROFEN SODIUM) [Concomitant]

REACTIONS (7)
  - ALANINE AMINOTRANSFERASE DECREASED [None]
  - DIARRHOEA [None]
  - LYMPHOCYTE STIMULATION TEST POSITIVE [None]
  - PRURITUS [None]
  - PYREXIA [None]
  - URTICARIA GENERALISED [None]
  - VOMITING [None]
